FAERS Safety Report 6122665-9 (Version None)
Quarter: 2009Q1

REPORT INFORMATION
  Report Type: 
  Country: None (occurrence: None)
  Receive Date: 20090318
  Receipt Date: 20090305
  Transmission Date: 20090719
  Serious: Yes (Hospitalization)
  Sender: FDA-Public Use
  Company Number: FR-WATSON-2009-01521

PATIENT
  Age: 33 Year
  Sex: Female

DRUGS (1)
  1. TRELSTAR DEPOT (WATSON LABORATORIES) [Suspect]
     Indication: INFERTILITY
     Dosage: UNK
     Route: 065

REACTIONS (1)
  - SCOTOMA [None]
